FAERS Safety Report 13371211 (Version 1)
Quarter: 2017Q1

REPORT INFORMATION
  Report Type: Report from Study
  Country: US (occurrence: BR)
  Receive Date: 20170324
  Receipt Date: 20170324
  Transmission Date: 20170429
  Serious: Yes (Other)
  Sender: FDA-Public Use
  Company Number: US-SUNOVION-2017SUN001248

PATIENT
  Sex: Male
  Weight: 53 kg

DRUGS (2)
  1. GLYCOPYRROLATE. [Suspect]
     Active Substance: GLYCOPYRROLATE
     Indication: EMPHYSEMA
     Dosage: 50 OT, QD
     Route: 055
  2. FORASEQ [Suspect]
     Active Substance: BUDESONIDE\FORMOTEROL FUMARATE
     Indication: EMPHYSEMA
     Dosage: 1 DF,Q12H
     Route: 055

REACTIONS (4)
  - Concomitant disease aggravated [Unknown]
  - Hepatomegaly [Not Recovered/Not Resolved]
  - Cardiac disorder [Unknown]
  - Hypoacusis [Not Recovered/Not Resolved]
